FAERS Safety Report 5002932-2 (Version None)
Quarter: 2006Q2

REPORT INFORMATION
  Report Type: 
  Country: None (occurrence: None)
  Receive Date: 20060516
  Receipt Date: 20060509
  Transmission Date: 20061013
  Serious: Yes (Other)
  Sender: FDA-Public Use
  Company Number: US-GLAXOSMITHKLINE-A0604851A

PATIENT
  Age: 50 Year
  Sex: Female

DRUGS (16)
  1. WELLBUTRIN [Suspect]
     Indication: DEPRESSION
     Route: 048
     Dates: start: 20060101, end: 20060401
  2. WELLBUTRIN [Suspect]
     Route: 048
  3. VYTORIN [Concomitant]
  4. VESICARE [Concomitant]
  5. MULTI-VITAMIN [Concomitant]
  6. NAPROXEN [Concomitant]
  7. VITAMIN C WITH ROSE HIPS [Concomitant]
  8. CALCIUM GLUCONATE [Concomitant]
  9. RANITIDINE [Concomitant]
  10. LORATADINE [Concomitant]
  11. BUSPIRONE [Concomitant]
  12. SYNTHROID [Concomitant]
  13. ECHINACEA [Concomitant]
  14. FIBER-CON [Concomitant]
  15. ASPIRIN [Concomitant]
  16. DILTIAZEM [Concomitant]

REACTIONS (4)
  - ANGER [None]
  - ILL-DEFINED DISORDER [None]
  - PSYCHIATRIC SYMPTOM [None]
  - THERAPEUTIC RESPONSE UNEXPECTED [None]
